FAERS Safety Report 7233790-3 (Version None)
Quarter: 2011Q1

REPORT INFORMATION
  Report Type: 
  Country: None (occurrence: None)
  Receive Date: 20110110
  Receipt Date: 20101227
  Transmission Date: 20110831
  Serious: Yes (Other)
  Sender: FDA-Public Use
  Company Number: WAES 1012USA04095

PATIENT
  Age: 61 Year
  Sex: Male
  Weight: 97.0698 kg

DRUGS (3)
  1. PLACEBO [Suspect]
     Indication: ACUTE CORONARY SYNDROME
     Dosage: PO
     Route: 048
     Dates: start: 20061103
  2. PLACEBO [Suspect]
     Indication: ACUTE CORONARY SYNDROME
     Dosage: PO
     Route: 048
     Dates: start: 20061103
  3. ZOCOR [Suspect]
     Indication: ACUTE CORONARY SYNDROME
     Dosage: 40 MG/DAILY/PO
     Route: 048
     Dates: start: 20061103

REACTIONS (1)
  - TRANSITIONAL CELL CARCINOMA [None]
